FAERS Safety Report 18333790 (Version 1)
Quarter: 2020Q3

REPORT INFORMATION
  Report Type: Spontaneous
  Country: US (occurrence: US)
  Receive Date: 20200930
  Receipt Date: 20200930
  Transmission Date: 20201103
  Serious: No
  Sender: FDA-Public Use
  Company Number: None

PATIENT
  Age: 69 Year
  Sex: Female
  Weight: 61.2 kg

DRUGS (1)
  1. NITROGLYCERIN TRANSDERMAL INFUSION SYSTEM [Suspect]
     Active Substance: NITROGLYCERIN
     Indication: HYPERTENSION
     Dosage: ?          QUANTITY:1 PATCH(ES);?
     Route: 062
     Dates: start: 20200927, end: 20200930

REACTIONS (2)
  - Application site erythema [None]
  - Application site pruritus [None]

NARRATIVE: CASE EVENT DATE: 20200928
